FAERS Safety Report 7379271-8 (Version None)
Quarter: 2011Q1

REPORT INFORMATION
  Report Type: 
  Country: None (occurrence: None)
  Receive Date: 20110328
  Receipt Date: 20101118
  Transmission Date: 20110831
  Serious: Yes (Hospitalization)
  Sender: FDA-Public Use
  Company Number: US-AMGEN-USACT2010003680

PATIENT
  Age: 47 Year
  Sex: Female

DRUGS (16)
  1. NEPHROCAPS [Concomitant]
     Dosage: UNK UNK, QD
     Route: 048
     Dates: start: 20090930
  2. EPOGEN [Concomitant]
     Dosage: 12800 UNIT, Q3WK
     Route: 042
     Dates: start: 20101020
  3. COLCHICINE [Concomitant]
     Dosage: 6 MG, UNK
     Route: 048
     Dates: start: 20100812
  4. HYDRALAZINE HCL [Concomitant]
     Dosage: 20 MG, UNK
     Route: 048
     Dates: start: 20100830
  5. NEURONTIN [Concomitant]
     Dosage: 300 MG, BID
     Route: 048
  6. SIMVASTATIN [Concomitant]
     Dosage: 20 MG, QD
     Route: 048
     Dates: start: 20100301
  7. PLAVIX [Concomitant]
     Dosage: 75 MG, UNK
     Route: 048
     Dates: start: 20100812
  8. ISORDIL [Concomitant]
     Dosage: 5 MG, TID
     Route: 048
  9. ALLOPURINOL [Concomitant]
     Dosage: 100 MG, UNK
     Route: 048
     Dates: start: 20100812
  10. COREG [Concomitant]
     Dosage: 25 MG, UNK
     Route: 048
     Dates: start: 20100812
  11. CINACALCET HYDROCHLORIDE [Suspect]
     Indication: HYPERPARATHYROIDISM SECONDARY
     Dosage: 60 MG, QD
     Route: 048
     Dates: start: 20090601
  12. KAYEXALATE [Concomitant]
     Dosage: UNK
     Route: 048
     Dates: start: 20101022, end: 20101022
  13. RENVELA [Concomitant]
     Dosage: 2400 MG, TID
     Route: 048
     Dates: start: 20101018
  14. COMPAZINE [Concomitant]
     Dosage: 5 MG, PRN
     Route: 048
     Dates: start: 20101023
  15. FUROSEMIDE [Concomitant]
     Dosage: 40 MG, QD
     Route: 048
     Dates: start: 20100901
  16. XANAX [Concomitant]
     Dosage: 0.5 MG, QD
     Route: 048
     Dates: start: 20100812

REACTIONS (4)
  - ARTERIOVENOUS FISTULA SITE COMPLICATION [None]
  - VASCULAR INSUFFICIENCY [None]
  - HYPERKALAEMIA [None]
  - LOCAL SWELLING [None]
